FAERS Safety Report 7413191-5 (Version None)
Quarter: 2011Q2

REPORT INFORMATION
  Report Type: 
  Country: None (occurrence: None)
  Receive Date: 20110408
  Receipt Date: 20110408
  Transmission Date: 20111010
  Serious: Yes (Hospitalization)
  Sender: FDA-Public Use
  Company Number: None

PATIENT
  Age: 87 Year
  Sex: Male
  Weight: 116.4 kg

DRUGS (2)
  1. GABAPENTIN [Suspect]
     Indication: PAIN
     Dosage: 100 MG OTHER PO
     Route: 048
     Dates: start: 20101202, end: 20110130
  2. GABAPENTIN [Suspect]
     Indication: PARAESTHESIA
     Dosage: 100 MG OTHER PO
     Route: 048
     Dates: start: 20101202, end: 20110130

REACTIONS (5)
  - MUSCULAR WEAKNESS [None]
  - VISION BLURRED [None]
  - TRANSIENT ISCHAEMIC ATTACK [None]
  - ASTHENIA [None]
  - DIZZINESS [None]
